FAERS Safety Report 7257524-1 (Version None)
Quarter: 2011Q1

REPORT INFORMATION
  Report Type: 
  Country: None (occurrence: None)
  Receive Date: 20110129
  Receipt Date: 20100519
  Transmission Date: 20110831
  Serious: No
  Sender: FDA-Public Use
  Company Number: US-ABBOTT-10P-163-0646724-00

PATIENT
  Sex: Female
  Weight: 59.02 kg

DRUGS (3)
  1. AMBIEN [Concomitant]
     Indication: SLEEP DISORDER THERAPY
  2. FLEXERIL [Concomitant]
     Indication: PRODUCT USED FOR UNKNOWN INDICATION
  3. HUMIRA [Suspect]
     Indication: ANKYLOSING SPONDYLITIS
     Dates: start: 20091201

REACTIONS (2)
  - NASOPHARYNGITIS [None]
  - PYREXIA [None]
